FAERS Safety Report 20533840 (Version 1)
Quarter: 2022Q1

REPORT INFORMATION
  Report Type: Spontaneous
  Country: IE (occurrence: IE)
  Receive Date: 20220301
  Receipt Date: 20220301
  Transmission Date: 20220423
  Serious: Yes (Hospitalization)
  Sender: FDA-Public Use
  Company Number: IE-SA-2019SA330584

PATIENT
  Sex: Female

DRUGS (7)
  1. LARONIDASE [Suspect]
     Active Substance: LARONIDASE
     Indication: Mucopolysaccharidosis I
     Dosage: UNK UNK, QW
  2. SYNAGIS [Concomitant]
     Active Substance: PALIVIZUMAB
     Indication: Bone marrow transplant
     Dosage: 15 MG/KG (AFTER 28 DAYS)
     Route: 030
     Dates: start: 20181009
  3. SYNAGIS [Concomitant]
     Active Substance: PALIVIZUMAB
     Dosage: 15 MG/KG (AFTER 28 DAYS)
     Route: 030
     Dates: start: 20181106
  4. SYNAGIS [Concomitant]
     Active Substance: PALIVIZUMAB
     Dosage: 15 MG/KG (AFTER 28 DAYS)
     Route: 030
     Dates: start: 20191028
  5. VITAMIN D [Concomitant]
     Active Substance: VITAMIN D NOS
     Indication: Product used for unknown indication
     Dosage: 0.3 ML, QD
  6. CALVAPEN [Concomitant]
     Indication: Product used for unknown indication
     Dosage: 0.5 ML, BID
  7. ZOVIRAX [Concomitant]
     Active Substance: ACYCLOVIR
     Indication: Product used for unknown indication
     Dosage: 5 ML Q.D.S

REACTIONS (3)
  - Lower respiratory tract infection [Recovered/Resolved]
  - Influenza like illness [Unknown]
  - Pyrexia [Unknown]

NARRATIVE: CASE EVENT DATE: 20191101
